FAERS Safety Report 9894570 (Version 3)
Quarter: 2015Q1

REPORT INFORMATION
  Report Type: Spontaneous
  Country: US (occurrence: US)
  Receive Date: 20140213
  Receipt Date: 20150223
  Transmission Date: 20150721
  Serious: Yes (Death, Life-Threatening, Hospitalization, Other)
  Sender: FDA-Public Use
  Company Number: US-MERCK-1402USA005839

PATIENT
  Sex: Female
  Weight: 117.91 kg

DRUGS (1)
  1. JANUVIA [Suspect]
     Active Substance: SITAGLIPTIN PHOSPHATE
     Indication: TYPE 2 DIABETES MELLITUS
     Dosage: 100 MG, QD
     Route: 048
     Dates: start: 20110418

REACTIONS (13)
  - Fungaemia [Fatal]
  - Atrial fibrillation [Unknown]
  - Adenocarcinoma pancreas [Fatal]
  - Liver abscess [Fatal]
  - Anaemia [Unknown]
  - Hypertension [Unknown]
  - Pancreatic stent placement [Recovering/Resolving]
  - Surgery [Unknown]
  - Anaemia of malignant disease [Unknown]
  - Bacteraemia [Fatal]
  - Arteriosclerosis [Unknown]
  - Spinal osteoarthritis [Unknown]
  - Back pain [Unknown]

NARRATIVE: CASE EVENT DATE: 20110601
